FAERS Safety Report 5407164-1 (Version None)
Quarter: 2007Q3

REPORT INFORMATION
  Report Type: 
  Country: None (occurrence: None)
  Receive Date: 20070807
  Receipt Date: 20070802
  Transmission Date: 20080115
  Serious: Yes (Hospitalization, Disabling, Other)
  Sender: FDA-Public Use
  Company Number: ES-BRISTOL-MYERS SQUIBB COMPANY-13854856

PATIENT
  Age: 43 Year
  Sex: Female
  Weight: 43 kg

DRUGS (7)
  1. REYATAZ [Suspect]
     Indication: HIV INFECTION
     Route: 048
     Dates: start: 20050601, end: 20070710
  2. VORICONAZOLE [Interacting]
     Indication: VITRITIS
     Dates: start: 20070621, end: 20070712
  3. VORICONAZOLE [Interacting]
     Indication: RETINITIS
     Dates: start: 20070621, end: 20070712
  4. KIVEXA [Concomitant]
     Indication: HIV INFECTION
     Dates: start: 20050601, end: 20070710
  5. NORVIR [Concomitant]
     Indication: HIV INFECTION
     Dates: start: 20050601, end: 20070710
  6. METHADONE HCL [Concomitant]
     Indication: DRUG DEPENDENCE
     Dates: start: 20030601
  7. RANITIDINE [Concomitant]
     Dates: start: 20070201

REACTIONS (5)
  - DRUG INTERACTION [None]
  - HEPATOTOXICITY [None]
  - MYOPATHY TOXIC [None]
  - RETINITIS [None]
  - VITRITIS [None]
